FAERS Safety Report 6590095-1 (Version None)
Quarter: 2010Q1

REPORT INFORMATION
  Report Type: 
  Country: None (occurrence: None)
  Receive Date: 20100212
  Receipt Date: 20100125
  Transmission Date: 20100710
  Serious: Yes (Other)
  Sender: FDA-Public Use
  Company Number: DSA_42163_2009

PATIENT
  Sex: Male

DRUGS (4)
  1. XENAZINE [Suspect]
     Indication: TIC
     Dosage: 25 MG TID ORAL, 12.5 MG Q A.M., 25 MG Q P.M., ORAL
     Route: 048
     Dates: start: 20091006
  2. KEPPRA [Concomitant]
  3. COGENTIN [Concomitant]
  4. MULTI-VITAMIN [Concomitant]

REACTIONS (3)
  - DYSTONIA [None]
  - GENERAL PHYSICAL HEALTH DETERIORATION [None]
  - SOMNOLENCE [None]
